FAERS Safety Report 17044700 (Version 1)
Quarter: 2019Q4

REPORT INFORMATION
  Report Type: Report from Study
  Country: TH (occurrence: TH)
  Receive Date: 20191118
  Receipt Date: 20191118
  Transmission Date: 20200122
  Serious: Yes (Other)
  Sender: FDA-Public Use
  Company Number: PHHY2017TH001503

PATIENT
  Age: 52 Year
  Sex: Female

DRUGS (1)
  1. GILENYA [Suspect]
     Active Substance: FINGOLIMOD HYDROCHLORIDE
     Indication: MULTIPLE SCLEROSIS
     Dosage: UNK, QD
     Route: 048
     Dates: start: 20141009

REACTIONS (16)
  - White blood cell count decreased [Recovering/Resolving]
  - Insomnia [Recovered/Resolved]
  - Intraocular pressure increased [Recovered/Resolved]
  - Fungal skin infection [Recovered/Resolved]
  - Dry eye [Recovered/Resolved]
  - Productive cough [Recovered/Resolved]
  - Kidney angiomyolipoma [Unknown]
  - Hepatic cyst [Unknown]
  - Oropharyngeal pain [Recovered/Resolved]
  - Alanine aminotransferase increased [Recovered/Resolved]
  - Low density lipoprotein increased [Unknown]
  - Dry eye [Unknown]
  - Nasopharyngitis [Recovered/Resolved]
  - Blood cholesterol increased [Unknown]
  - Rash [Recovered/Resolved]
  - Tendonitis [None]

NARRATIVE: CASE EVENT DATE: 20161223
